FAERS Safety Report 6958636-X (Version None)
Quarter: 2010Q3

REPORT INFORMATION
  Report Type: 
  Country: None (occurrence: None)
  Receive Date: 20100830
  Receipt Date: 20100830
  Transmission Date: 20110219
  Serious: Yes (Death)
  Sender: FDA-Public Use
  Company Number: None

PATIENT
  Age: 92 Year
  Sex: Male
  Weight: 68.0396 kg

DRUGS (1)
  1. ABILIFY [Suspect]
     Indication: DEMENTIA
     Dosage: 2.5 MG 2 X DAILY PO
     Route: 048
     Dates: start: 20091007, end: 20100828

REACTIONS (1)
  - UNEVALUABLE EVENT [None]
